FAERS Safety Report 15276598 (Version 1)
Quarter: 2018Q4

REPORT INFORMATION
  Report Type: Spontaneous
  Country: MT (occurrence: MT)
  Receive Date: 20180814
  Receipt Date: 20180814
  Transmission Date: 20190204
  Serious: Yes (Hospitalization)
  Sender: FDA-Public Use
  Company Number: MT-PURACAP PHARMACEUTICAL LLC-2018EPC00376

PATIENT
  Age: 31 Year
  Sex: Female

DRUGS (5)
  1. ACETAMINOPHEN. [Suspect]
     Active Substance: ACETAMINOPHEN
     Dosage: 12 G PARACETAMOL/480 MG CAFFEINE
     Route: 065
  2. AMLODIPINE [Suspect]
     Active Substance: AMLODIPINE BESYLATE
     Dosage: 260 MG, UNK
     Route: 065
  3. PERINDOPRIL [Suspect]
     Active Substance: PERINDOPRIL
     Dosage: 104 MG, UNK
     Route: 065
  4. IBUPROFEN. [Suspect]
     Active Substance: IBUPROFEN
     Dosage: 2.74 G, UNK
     Route: 065
  5. ALCOHOLIC BEVERAGES [Suspect]
     Active Substance: ALCOHOL
     Dosage: ?OVER 1 L?
     Route: 065

REACTIONS (5)
  - Metabolic acidosis [Unknown]
  - Intentional overdose [Unknown]
  - Hypocalcaemia [Unknown]
  - Hypotension [Unknown]
  - Confusional state [Unknown]
